FAERS Safety Report 4849534-6 (Version None)
Quarter: 2005Q4

REPORT INFORMATION
  Report Type: 
  Country: None (occurrence: None)
  Receive Date: 20051207
  Receipt Date: 20051130
  Transmission Date: 20060501
  Serious: Yes (Death, Hospitalization)
  Sender: FDA-Public Use
  Company Number: 2005US001764

PATIENT
  Age: 66 Year
  Sex: Male

DRUGS (7)
  1. AMBISOME [Suspect]
     Indication: PROPHYLAXIS
     Dosage: SEE IMAGE
  2. CASPOFUNGIN (CASPOFUNGIN) [Concomitant]
  3. FLUDARABINE PHOSPHATE [Concomitant]
  4. CARMUSTINE [Concomitant]
  5. MELPHALAN (MELPHALAN) [Concomitant]
  6. CYCLOSPORINE [Concomitant]
  7. MYCOPHENOLATE MOFETIL (MYCOPHENOLATE MOFETIL) [Concomitant]

REACTIONS (10)
  - ASPERGILLOSIS [None]
  - COUGH [None]
  - DRUG INEFFECTIVE [None]
  - MULTI-ORGAN FAILURE [None]
  - PLEURAL EFFUSION [None]
  - PNEUMONIA [None]
  - PULMONARY HAEMORRHAGE [None]
  - RENAL FAILURE [None]
  - RESPIRATORY FAILURE [None]
  - SEPTIC SHOCK [None]
